FAERS Safety Report 5659731-8 (Version None)
Quarter: 2008Q1

REPORT INFORMATION
  Report Type: 
  Country: None (occurrence: None)
  Receive Date: 20080311
  Receipt Date: 20070703
  Transmission Date: 20080703
  Serious: No
  Sender: FDA-Public Use
  Company Number: US-BAYER-200712129BCC

PATIENT
  Age: 85 Year
  Sex: Female
  Weight: 65 kg

DRUGS (4)
  1. ALEVE [Suspect]
     Indication: ARTHRITIS
     Dosage: TOTAL DAILY DOSE: 220 MG  UNIT DOSE: 220 MG
     Route: 048
     Dates: start: 20070702
  2. ONE A DAY VITAMIN [Suspect]
     Route: 048
     Dates: start: 20070702
  3. SYNTHROID [Concomitant]
  4. GLUCOSAMINE [Concomitant]

REACTIONS (1)
  - STOMACH DISCOMFORT [None]
